FAERS Safety Report 10257343 (Version 1)
Quarter: 2014Q2

REPORT INFORMATION
  Report Type: Spontaneous
  Country: GB (occurrence: GB)
  Receive Date: 20140625
  Receipt Date: 20140625
  Transmission Date: 20141212
  Serious: Yes (Other)
  Sender: FDA-Public Use
  Company Number: GB-TEVA-488921ISR

PATIENT
  Age: 93 Year
  Sex: Male

DRUGS (3)
  1. PHENYTOIN [Suspect]
  2. XARELTO [Interacting]
     Indication: ATRIAL FIBRILLATION
  3. XARELTO [Interacting]
     Indication: CEREBROVASCULAR ACCIDENT PROPHYLAXIS
     Dosage: 20 MILLIGRAM DAILY;

REACTIONS (3)
  - Renal impairment [Unknown]
  - Incorrect dose administered [Unknown]
  - Drug interaction [Unknown]
